FAERS Safety Report 10501179 (Version 1)
Quarter: 2014Q4

REPORT INFORMATION
  Report Type: Spontaneous
  Country: US (occurrence: None)
  Receive Date: 20141006
  Receipt Date: 20141006
  Transmission Date: 20150528
  Serious: Yes (Death, Life-Threatening, Hospitalization)
  Sender: FDA-Public Use
  Company Number: None

PATIENT
  Age: 80 Year
  Sex: Female
  Weight: 69.85 kg

DRUGS (8)
  1. ANTI DEPRESSANT [Concomitant]
     Active Substance: UNSPECIFIED INGREDIENT
  2. ZANTAC [Concomitant]
     Active Substance: RANITIDINE HYDROCHLORIDE
  3. DAILY VITAMIN [Concomitant]
     Active Substance: VITAMINS
  4. ZESTRIL [Concomitant]
     Active Substance: LISINOPRIL
  5. STOOL SOFTENER [Concomitant]
     Active Substance: DOCUSATE CALCIUM
  6. PROZAC [Concomitant]
     Active Substance: FLUOXETINE HYDROCHLORIDE
  7. PLAVIX [Concomitant]
     Active Substance: CLOPIDOGREL BISULFATE
  8. PLAVIX [Suspect]
     Active Substance: CLOPIDOGREL BISULFATE
     Indication: STENT PLACEMENT

REACTIONS (6)
  - Splenic rupture [None]
  - Cardiac disorder [None]
  - Intestinal perforation [None]
  - Shock [None]
  - Haematocrit decreased [None]
  - Haemorrhage [None]

NARRATIVE: CASE EVENT DATE: 20120503
